FAERS Safety Report 9693461 (Version 1)
Quarter: 2013Q4

REPORT INFORMATION
  Report Type: Spontaneous
  Country: FR (occurrence: FR)
  Receive Date: 20131118
  Receipt Date: 20131118
  Transmission Date: 20140711
  Serious: Yes (Life-Threatening, Hospitalization)
  Sender: FDA-Public Use
  Company Number: FR-PFIZER INC-2013324606

PATIENT
  Age: 59 Year
  Sex: Male
  Weight: 90 kg

DRUGS (16)
  1. ZYVOXID [Suspect]
     Indication: ANTI-INFECTIVE THERAPY
     Dosage: 600 MG, 2X/DAY
     Route: 042
     Dates: start: 20130210, end: 20130212
  2. TAZOCILLINE [Suspect]
     Indication: LEUKOCYTURIA
     Dosage: 4.5 G, 2X/DAY
     Route: 042
     Dates: start: 20130128, end: 20130203
  3. TAZOCILLINE [Suspect]
     Indication: ANTI-INFECTIVE THERAPY
     Dosage: 4.5 G, 2X/DAY
     Route: 042
     Dates: start: 20130211, end: 20130212
  4. TAZOCILLINE [Suspect]
     Dosage: 2.25 G, DAILY
     Route: 042
     Dates: start: 20130214, end: 20130214
  5. INEXIUM [Suspect]
     Dosage: 40 MG, DAILY
     Route: 042
     Dates: start: 201302, end: 20130212
  6. CORTANCYL [Concomitant]
     Dosage: 5 MG, DAILY
  7. ACUPAN [Concomitant]
     Dosage: 20 MG, 2X/DAY
  8. TRAMADOL LP [Concomitant]
     Dosage: 100 MG, 2X/DAY
  9. DAFALGAN [Concomitant]
     Dosage: 1 G, 4X/DAY
  10. KARDEGIC [Concomitant]
     Dosage: 75 MG, DAILY
  11. PARIET [Concomitant]
     Dosage: 20 MG, DAILY
     Dates: end: 20130204
  12. LASILIX [Concomitant]
     Dosage: 500 MG, DAILY
  13. RENAGEL [Concomitant]
     Dosage: 1.6 G, 3X/DAY
  14. HEPARINE [Concomitant]
     Dosage: 12000 IU, DAILY
  15. CIFLOX [Concomitant]
     Indication: LEUKOCYTURIA
     Dosage: UNK
     Dates: start: 20130128, end: 201302
  16. CIFLOX [Concomitant]
     Indication: ANTI-INFECTIVE THERAPY

REACTIONS (4)
  - Status epilepticus [Recovered/Resolved]
  - Convulsion [Recovered/Resolved]
  - Pancytopenia [Recovered/Resolved]
  - Haemoptysis [Recovered/Resolved]
